FAERS Safety Report 5523386-3 (Version None)
Quarter: 2007Q4

REPORT INFORMATION
  Report Type: 
  Country: None (occurrence: None)
  Receive Date: 20071121
  Receipt Date: 20071120
  Transmission Date: 20080405
  Serious: Yes (Death, Hospitalization)
  Sender: FDA-Public Use
  Company Number: D0055203A

PATIENT
  Age: 67 Year
  Sex: Male

DRUGS (3)
  1. AVANDAMET [Suspect]
     Route: 048
  2. SIMVASTATIN [Concomitant]
     Dosage: 20MG UNKNOWN
     Route: 048
  3. ATENOLOL [Concomitant]
     Dosage: 25MG UNKNOWN
     Route: 048

REACTIONS (8)
  - BLOOD BILIRUBIN INCREASED [None]
  - DRUG ERUPTION [None]
  - HEPATIC FAILURE [None]
  - HEPATOCELLULAR DAMAGE [None]
  - OEDEMA PERIPHERAL [None]
  - PEMPHIGOID [None]
  - RENAL FAILURE [None]
  - TRANSAMINASES INCREASED [None]
